FAERS Safety Report 4885435-5 (Version None)
Quarter: 2005Q4

REPORT INFORMATION
  Report Type: 
  Country: None (occurrence: None)
  Receive Date: 20051220
  Receipt Date: 20051006
  Transmission Date: 20060501
  Serious: Yes (Death)
  Sender: FDA-Public Use
  Company Number: HQWYE951110OCT05

PATIENT
  Age: 40 Year
  Sex: Male

DRUGS (1)
  1. EFFEXOR XR [Suspect]
     Dates: start: 20040101, end: 20040101

REACTIONS (1)
  - COMPLETED SUICIDE [None]
